FAERS Safety Report 4345031-5 (Version None)
Quarter: 2004Q2

REPORT INFORMATION
  Report Type: 
  Country: None (occurrence: None)
  Receive Date: 20040420
  Receipt Date: 20040405
  Transmission Date: 20050107
  Serious: No
  Sender: FDA-Public Use
  Company Number: 2004SE01946

PATIENT
  Age: 63 Year
  Sex: Male
  Weight: 75 kg

DRUGS (4)
  1. NEXIUM [Suspect]
     Indication: REFLUX OESOPHAGITIS
     Dosage: 20 MG QD PO
     Route: 048
     Dates: start: 20030612
  2. DAONIL [Concomitant]
  3. ZARATOR ^PARKE DAVIS^ [Concomitant]
  4. ZESTRIL [Concomitant]

REACTIONS (3)
  - AGEUSIA [None]
  - ECZEMA [None]
  - NAIL DISORDER [None]
